FAERS Safety Report 24113311 (Version 2)
Quarter: 2024Q3

REPORT INFORMATION
  Report Type: Spontaneous
  Country: US (occurrence: US)
  Receive Date: 20240719
  Receipt Date: 20240812
  Transmission Date: 20241016
  Serious: Yes (Hospitalization, Other)
  Sender: NOVO NORDISK
  Company Number: US-NOVOPROD-1255169

PATIENT
  Age: 52 Year
  Sex: Female

DRUGS (6)
  1. SEMAGLUTIDE [Suspect]
     Active Substance: SEMAGLUTIDE
     Dosage: 50 UNITS FOR 1 DOSE
     Route: 058
     Dates: start: 2023, end: 20231108
  2. SEMAGLUTIDE [Suspect]
     Active Substance: SEMAGLUTIDE
     Dosage: WENT TO 25 UNITS FOR 4 WEEKS (TAKEN FOR 2 WEEKS)
     Route: 058
     Dates: start: 20231019, end: 2023
  3. SEMAGLUTIDE [Suspect]
     Active Substance: SEMAGLUTIDE
     Indication: Weight control
     Dosage: STARTED WITH 12.5 UNITS FOR 2 WEEKS (TAKEN FOR 4 WEEKS)
     Route: 058
     Dates: start: 20230813, end: 2023
  4. WEGOVY [Suspect]
     Active Substance: SEMAGLUTIDE
     Dosage: WENT TO 25 UNITS FOR 4 WEEKS (TAKEN FOR 2 WEEKS)
     Route: 058
     Dates: start: 20231019, end: 2023
  5. WEGOVY [Suspect]
     Active Substance: SEMAGLUTIDE
     Indication: Weight decreased
     Dosage: STARTED WITH 12.5 UNITS FOR 2 WEEKS
     Route: 058
     Dates: start: 20230813, end: 2023
  6. WEGOVY [Suspect]
     Active Substance: SEMAGLUTIDE
     Dosage: 50 UNITS FOR 1 DOSE
     Route: 058
     Dates: start: 2023, end: 20231108

REACTIONS (10)
  - Hepatic cirrhosis [Not Recovered/Not Resolved]
  - Acute hepatic failure [Recovered/Resolved]
  - Hepatic steatosis [Unknown]
  - Liver injury [Unknown]
  - Gait disturbance [Recovered/Resolved]
  - Brain fog [Not Recovered/Not Resolved]
  - Nausea [Recovered/Resolved]
  - Diarrhoea [Recovered/Resolved]
  - Weight loss poor [Unknown]
  - Counterfeit product administered [Recovered/Resolved]

NARRATIVE: CASE EVENT DATE: 20230801
